FAERS Safety Report 16062140 (Version 1)
Quarter: 2019Q1

REPORT INFORMATION
  Report Type: Spontaneous
  Country: US (occurrence: US)
  Receive Date: 20190312
  Receipt Date: 20190312
  Transmission Date: 20190418
  Serious: Yes (Other)
  Sender: FDA-Public Use
  Company Number: US-MYLANLABS-2019M1021854

PATIENT
  Age: 66 Year
  Sex: Male
  Weight: 96.59 kg

DRUGS (5)
  1. VIAGRA [Concomitant]
     Active Substance: SILDENAFIL CITRATE
     Dosage: UNK
  2. SULFASALAZINE. [Concomitant]
     Active Substance: SULFASALAZINE
     Dosage: UNK, QD (3 IN AM AND 3 IN PM)
     Dates: start: 20100101
  3. SAW PALMETTO                       /00833501/ [Concomitant]
     Active Substance: HERBALS\SAW PALMETTO
     Dosage: UNK, BID (1 CAP TWICE DAILY)
     Dates: start: 20190201
  4. MESALAMINE RECTAL SUSPENSION ENEMA [Suspect]
     Active Substance: MESALAMINE
     Indication: COLITIS ULCERATIVE
     Dosage: USES ONCE PER DAY AT BED TIME, HS
     Route: 054
     Dates: start: 20190130
  5. MELATONIN [Concomitant]
     Active Substance: MELATONIN
     Dosage: OCASSIONALLY

REACTIONS (2)
  - Condition aggravated [Unknown]
  - Rectal haemorrhage [Unknown]

NARRATIVE: CASE EVENT DATE: 2019
